FAERS Safety Report 6453035-1 (Version None)
Quarter: 2009Q4

REPORT INFORMATION
  Report Type: 
  Country: None (occurrence: None)
  Receive Date: 20091123
  Receipt Date: 20091123
  Transmission Date: 20100525
  Serious: Yes (Disabling)
  Sender: FDA-Public Use
  Company Number: None

PATIENT
  Age: 40 Year
  Sex: Female
  Weight: 90.7194 kg

DRUGS (1)
  1. ZYVOX [Suspect]
     Indication: ARTHRITIS INFECTIVE
     Dosage: 600MG BID ORAL
     Route: 048
     Dates: start: 20070530, end: 20081001

REACTIONS (1)
  - NEUROPATHY PERIPHERAL [None]
